FAERS Safety Report 19356588 (Version 1)
Quarter: 2021Q2

REPORT INFORMATION
  Report Type: Spontaneous
  Country: US (occurrence: US)
  Receive Date: 20210531
  Receipt Date: 20210531
  Transmission Date: 20210717
  Serious: No
  Sender: FDA-Public Use
  Company Number: US-PURDUE PHARMA-USA-2021-0202497

PATIENT
  Sex: Female

DRUGS (3)
  1. OXYCODONE HCL TABLETS (91?490) [Suspect]
     Active Substance: OXYCODONE HYDROCHLORIDE
     Indication: SPINAL STENOSIS
     Dosage: 15 MG, 5/DAY
     Route: 048
  2. OXYCODONE HCL TABLETS (91?490) [Suspect]
     Active Substance: OXYCODONE HYDROCHLORIDE
     Indication: INTERVERTEBRAL DISC DISORDER
  3. OXYCODONE HCL TABLETS (91?490) [Suspect]
     Active Substance: OXYCODONE HYDROCHLORIDE
     Indication: NERVE COMPRESSION

REACTIONS (1)
  - Drug ineffective [Unknown]
